FAERS Safety Report 8358201-6 (Version None)
Quarter: 2012Q2

REPORT INFORMATION
  Report Type: 
  Country: None (occurrence: None)
  Receive Date: 20120514
  Receipt Date: 20120504
  Transmission Date: 20120825
  Serious: Yes (Congenital Anomaly)
  Sender: FDA-Public Use
  Company Number: US-GLAXOSMITHKLINE-A0977199A

PATIENT
  Sex: Male
  Weight: 1.5 kg

DRUGS (6)
  1. MULTI-VITAMINS [Concomitant]
  2. NEURONTIN [Concomitant]
  3. WELLBUTRIN [Concomitant]
  4. SEROQUEL [Concomitant]
  5. PAXIL [Suspect]
     Indication: DEPRESSION
     Dosage: 25MG PER DAY
     Route: 064
  6. PREDNISONE [Concomitant]

REACTIONS (2)
  - FOETAL EXPOSURE DURING PREGNANCY [None]
  - TALIPES [None]
